FAERS Safety Report 4409781-4 (Version None)
Quarter: 2004Q3

REPORT INFORMATION
  Report Type: 
  Country: None (occurrence: None)
  Receive Date: 20040726
  Receipt Date: 20040712
  Transmission Date: 20050211
  Serious: No
  Sender: FDA-Public Use
  Company Number: 2004-00269FE

PATIENT
  Age: 72 Year
  Sex: Male

DRUGS (5)
  1. PENTASA [Suspect]
     Indication: COLITIS ULCERATIVE
     Dosage: 3 G ORALLY
     Route: 048
     Dates: start: 20040421
  2. PREVISCAN (PREVISCAN) (FLUINDIONE) [Suspect]
     Indication: THROMBOSIS PROPHYLAXIS
     Dosage: ORALLY
     Route: 048
  3. MESALAMINE [Concomitant]
  4. HYDROCORTISONE ACETATE [Concomitant]
  5. TRANEXAMIC ACID [Concomitant]

REACTIONS (4)
  - COAGULATION TIME PROLONGED [None]
  - DRUG INTERACTION [None]
  - HAEMATOCHEZIA [None]
  - PROTHROMBIN TIME RATIO INCREASED [None]
